FAERS Safety Report 7096594-0 (Version None)
Quarter: 2010Q4

REPORT INFORMATION
  Report Type: 
  Country: None (occurrence: None)
  Receive Date: 20101111
  Receipt Date: 20101103
  Transmission Date: 20110411
  Serious: Yes (Hospitalization)
  Sender: FDA-Public Use
  Company Number: Z0003314A

PATIENT
  Sex: Female
  Weight: 54.7 kg

DRUGS (2)
  1. PAZOPANIB [Suspect]
     Indication: RENAL CELL CARCINOMA
     Dosage: 800MG PER DAY
     Route: 048
     Dates: start: 20100205
  2. FAMOTIDINE [Concomitant]
     Indication: FEBRILE NEUTROPENIA
     Dosage: 20MG SINGLE DOSE
     Route: 042
     Dates: start: 20100218, end: 20100219

REACTIONS (1)
  - FEBRILE NEUTROPENIA [None]
